FAERS Safety Report 9895384 (Version 1)
Quarter: 2014Q1

REPORT INFORMATION
  Report Type: Spontaneous
  Country: US (occurrence: US)
  Receive Date: 20140213
  Receipt Date: 20140213
  Transmission Date: 20141002
  Serious: No
  Sender: FDA-Public Use
  Company Number: US-BRISTOL-MYERS SQUIBB COMPANY-17278029

PATIENT
  Age: 52 Year
  Sex: Female
  Weight: 63.49 kg

DRUGS (10)
  1. ABATACEPT SUBQ INJECTION 125MG/ML [Suspect]
     Dosage: 1DF:125MG/1ML EVERY WEEK
     Route: 058
  2. VITAMIN C AND E [Concomitant]
     Dosage: CAPULE, COMBO
  3. METHOTREXATE [Concomitant]
     Dosage: INJ;100/4 ML
  4. FISH OIL [Concomitant]
     Dosage: CAPS
  5. ALEVE COLD + SINUS [Concomitant]
     Dosage: TABS
  6. CALCIUM [Concomitant]
     Dosage: TABS 500
  7. VITAMIN D3 [Concomitant]
     Dosage: CAP, 5000UNIT
  8. FOLIC ACID [Concomitant]
     Dosage: CAP,
  9. VITAMIN B COMPLEX [Concomitant]
     Dosage: INJ, 100
  10. CRANBERRY [Concomitant]

REACTIONS (3)
  - Nasopharyngitis [Unknown]
  - Dysphonia [Unknown]
  - Cough [Unknown]
